FAERS Safety Report 7626938-X (Version None)
Quarter: 2011Q3

REPORT INFORMATION
  Report Type: 
  Country: None (occurrence: None)
  Receive Date: 20110714
  Receipt Date: 20110630
  Transmission Date: 20111222
  Serious: Yes (Other)
  Sender: FDA-Public Use
  Company Number: MC201100187

PATIENT
  Age: 77 Year
  Sex: Female
  Weight: 65.3 kg

DRUGS (2)
  1. ANGIOMAX [Suspect]
     Indication: PERCUTANEOUS CORONARY INTERVENTION
     Dosage: 0.75 MG/KG, BOLUS, FEM ACCESS PCI; 23 ML, HR, FEM ACCESS PCI
     Dates: start: 20110425
  2. ANGIOMAX [Suspect]
     Indication: PERCUTANEOUS CORONARY INTERVENTION
     Dosage: 0.75 MG/KG, BOLUS, FEM ACCESS PCI; 23 ML, HR, FEM ACCESS PCI
     Dates: start: 20110425, end: 20110425

REACTIONS (2)
  - TRANSIENT ISCHAEMIC ATTACK [None]
  - INFUSION RELATED REACTION [None]
